FAERS Safety Report 11167245 (Version 1)
Quarter: 2015Q2

REPORT INFORMATION
  Report Type: Spontaneous
  Country: US (occurrence: None)
  Receive Date: 20150515
  Receipt Date: 20150515
  Transmission Date: 20150821
  Serious: Yes (Hospitalization)
  Sender: FDA-Public Use
  Company Number: 114884

PATIENT
  Age: 27 Year
  Sex: Female

DRUGS (4)
  1. PREDNISONE (PREDNISONE ACETATE) [Concomitant]
  2. CIMZIA [Suspect]
     Active Substance: CERTOLIZUMAB PEGOL
     Dates: start: 20140206
  3. LOPERAMIDE HCL (LOPERAMIDE HYDROCHLORIDE) [Concomitant]
  4. METHOTREXATE (METHOTREXATE SODIUM) [Concomitant]
     Active Substance: METHOTREXATE SODIUM

REACTIONS (1)
  - Pyrexia [None]

NARRATIVE: CASE EVENT DATE: 201403
